FAERS Safety Report 9285139 (Version 2)
Quarter: 2013Q2

REPORT INFORMATION
  Report Type: Spontaneous
  Country: IT (occurrence: IT)
  Receive Date: 20130513
  Receipt Date: 20130523
  Transmission Date: 20140414
  Serious: No
  Sender: FDA-Public Use
  Company Number: IT-009507513-1305ITA006545

PATIENT
  Age: 82 Year
  Sex: Female
  Weight: 70 kg

DRUGS (2)
  1. ELOCON [Suspect]
     Indication: ADVERSE EVENT
     Dosage: 1 DOSE UNIT, ONE APPLICATION ON THE TONGUE
     Route: 048
     Dates: start: 20130408, end: 20130429
  2. BENZYL ALCOHOL [Suspect]
     Indication: ADVERSE EVENT
     Dosage: 2 GTT, QD (FORMULATION-DROPS)
     Route: 048
     Dates: start: 20130408, end: 20130429

REACTIONS (2)
  - Dyspepsia [Recovered/Resolved]
  - Medication error [Not Recovered/Not Resolved]
